FAERS Safety Report 9679543 (Version 1)
Quarter: 2013Q4

REPORT INFORMATION
  Report Type: Spontaneous
  Country: US (occurrence: US)
  Receive Date: 20131109
  Receipt Date: 20131109
  Transmission Date: 20140711
  Serious: No
  Sender: FDA-Public Use
  Company Number: US-SANOFI-AVENTIS-2013SA086709

PATIENT
  Age: 49 Year
  Sex: Female

DRUGS (2)
  1. ALLEGRA-D [Suspect]
     Indication: SINUS DISORDER
     Route: 048
  2. ALLEGRA-D [Suspect]
     Indication: DIZZINESS
     Route: 048

REACTIONS (1)
  - Therapeutic response decreased [Unknown]
